FAERS Safety Report 10223696 (Version 1)
Quarter: 2014Q2

REPORT INFORMATION
  Report Type: Spontaneous
  Country: GB (occurrence: None)
  Receive Date: 20140605
  Receipt Date: 20140605
  Transmission Date: 20141212
  Serious: Yes (Hospitalization, Other)
  Sender: FDA-Public Use
  Company Number: GB-DEXPHARM-20140305

PATIENT
  Sex: Female

DRUGS (2)
  1. OMEPRAZOLE [Suspect]
     Indication: GASTROOESOPHAGEAL REFLUX DISEASE
     Dates: start: 20140123, end: 20140126
  2. CALCICHEW [Concomitant]

REACTIONS (28)
  - Alopecia [None]
  - Condition aggravated [None]
  - Depression [None]
  - Dizziness [None]
  - Dry mouth [None]
  - Eye discharge [None]
  - Eye infection [None]
  - Flatulence [None]
  - Abdominal discomfort [None]
  - Pharyngeal haemorrhage [None]
  - Pruritus [None]
  - Labyrinthitis [None]
  - Drug ineffective [None]
  - Liver disorder [None]
  - Nausea [None]
  - Epistaxis [None]
  - Dyspnoea [None]
  - Sleep disorder [None]
  - Dysphagia [None]
  - Hyperhidrosis [None]
  - Pharyngeal oedema [None]
  - Malaise [None]
  - Vertigo [None]
  - Visual impairment [None]
  - Renal disorder [None]
  - Motor dysfunction [None]
  - Asthenia [None]
  - Angioedema [None]
